FAERS Safety Report 7624811-4 (Version None)
Quarter: 2011Q3

REPORT INFORMATION
  Report Type: 
  Country: None (occurrence: None)
  Receive Date: 20110720
  Receipt Date: 20110712
  Transmission Date: 20111222
  Serious: Yes (Hospitalization)
  Sender: FDA-Public Use
  Company Number: US-ASTRAZENECA-2011SE41660

PATIENT
  Sex: Male

DRUGS (5)
  1. CRESTOR [Suspect]
     Indication: HYPERCHOLESTEROLAEMIA
     Route: 048
  2. ASPIRIN [Concomitant]
     Dosage: LOW DOSE
  3. CRESTOR [Suspect]
     Route: 048
  4. CRESTOR [Suspect]
     Route: 048
  5. FLOMAX [Concomitant]

REACTIONS (4)
  - ARTHRALGIA [None]
  - VITRECTOMY [None]
  - RETINAL OEDEMA [None]
  - MYALGIA [None]
